FAERS Safety Report 6555938-6 (Version None)
Quarter: 2010Q1

REPORT INFORMATION
  Report Type: 
  Country: None (occurrence: None)
  Receive Date: 20100128
  Receipt Date: 20100119
  Transmission Date: 20100710
  Serious: Yes (Other)
  Sender: FDA-Public Use
  Company Number: US-JNJFOC-20100110168

PATIENT
  Sex: Male
  Weight: 22.68 kg

DRUGS (1)
  1. RISPERDAL [Suspect]
     Indication: TOURETTE'S DISORDER
     Route: 048

REACTIONS (4)
  - ANXIETY [None]
  - HALLUCINATION [None]
  - OFF LABEL USE [None]
  - WEIGHT INCREASED [None]
